FAERS Safety Report 16348348 (Version 1)
Quarter: 2019Q2

REPORT INFORMATION
  Report Type: Spontaneous
  Country: AU (occurrence: AU)
  Receive Date: 20190523
  Receipt Date: 20190523
  Transmission Date: 20190711
  Serious: Yes (Hospitalization)
  Sender: FDA-Public Use
  Company Number: AU-ENDO PHARMACEUTICALS INC-2019-104765

PATIENT
  Age: 34 Year
  Sex: Male

DRUGS (1)
  1. BACLOFEN. [Suspect]
     Active Substance: BACLOFEN
     Indication: OROMANDIBULAR DYSTONIA
     Dosage: 360 MG, UNKNOWN
     Route: 065

REACTIONS (4)
  - Loss of consciousness [Unknown]
  - Intentional overdose [Unknown]
  - Bradycardia [Unknown]
  - Hypotension [Unknown]
